FAERS Safety Report 6833636-9 (Version None)
Quarter: 2010Q3

REPORT INFORMATION
  Report Type: 
  Country: None (occurrence: None)
  Receive Date: 20100712
  Receipt Date: 20070329
  Transmission Date: 20110219
  Serious: Yes (Other)
  Sender: FDA-Public Use
  Company Number: US-PFIZER INC-2007026954

PATIENT
  Sex: Female
  Weight: 65.8 kg

DRUGS (11)
  1. CHANTIX [Suspect]
     Indication: SMOKING CESSATION THERAPY
     Dates: start: 20070311
  2. ZOLOFT [Concomitant]
  3. PERCOCET [Concomitant]
  4. MORPHINE SULFATE [Concomitant]
  5. PREVACID [Concomitant]
  6. SYNTHROID [Concomitant]
  7. PRENATAL VITAMINS [Concomitant]
  8. VITAMIN D [Concomitant]
  9. POTASSIUM [Concomitant]
  10. ACETYLSALICYLIC ACID [Concomitant]
  11. ALL OTHER THERAPEUTIC PRODUCTS [Concomitant]

REACTIONS (2)
  - DYSPEPSIA [None]
  - DYSPNOEA [None]
